FAERS Safety Report 6017126-1 (Version None)
Quarter: 2008Q4

REPORT INFORMATION
  Report Type: 
  Country: None (occurrence: None)
  Receive Date: 20081219
  Receipt Date: 20050331
  Transmission Date: 20090506
  Serious: No
  Sender: FDA-Public Use
  Company Number: TEST00205001048

PATIENT
  Age: 13 Year
  Sex: Female

DRUGS (2)
  1. ANDROGEL [Suspect]
     Indication: ACCIDENTAL EXPOSURE
     Dosage: /DAILY TRANSCUTANEOUS
     Route: 062
  2. ANDROGEL [Suspect]
     Indication: DRUG USE FOR UNKNOWN INDICATION
     Dosage: /DAILY TRANSCUTANEOUS
     Route: 062

REACTIONS (3)
  - ACCIDENTAL EXPOSURE [None]
  - ACNE [None]
  - ALOPECIA [None]
